FAERS Safety Report 10728028 (Version 1)
Quarter: 2015Q1

REPORT INFORMATION
  Report Type: Spontaneous
  Country: US (occurrence: US)
  Receive Date: 20150121
  Receipt Date: 20150121
  Transmission Date: 20150721
  Serious: No
  Sender: FDA-Public Use
  Company Number: US-009507513-1501USA007300

PATIENT
  Sex: Male

DRUGS (1)
  1. AFRIN [Suspect]
     Active Substance: OXYMETAZOLINE
     Indication: EPISTAXIS
     Dosage: UNK, UNKNOWN
     Route: 045

REACTIONS (3)
  - Rash [Unknown]
  - Therapeutic response unexpected [Unknown]
  - Off label use [Unknown]
